FAERS Safety Report 4406650-0 (Version None)
Quarter: 2004Q3

REPORT INFORMATION
  Report Type: 
  Country: None (occurrence: None)
  Receive Date: 20040720
  Receipt Date: 20040705
  Transmission Date: 20050211
  Serious: Yes (Death)
  Sender: FDA-Public Use
  Company Number: 2004-DE-03714GD (0)

PATIENT
  Age: 38 Year
  Sex: Male

DRUGS (2)
  1. NEVIRAPINE (NEVIRAPINE) (NEVIRAPINE) [Suspect]
     Indication: HIV INFECTION
     Dosage: 400 MG (200 MG, TWICE DAILY)
  2. STAVUDINE (STAVUDINE) [Suspect]
     Indication: HIV INFECTION
     Dosage: 60 MG (30 MG, TWICE DAILY)

REACTIONS (6)
  - BACTERIAL INFECTION [None]
  - BUSCHKE-LOWENSTEIN'S TUMOUR [None]
  - CONDYLOMA ACUMINATUM [None]
  - DISEASE PROGRESSION [None]
  - IMMUNE RECONSTITUTION SYNDROME [None]
  - SUPERINFECTION [None]
